FAERS Safety Report 6596389-8 (Version None)
Quarter: 2010Q1

REPORT INFORMATION
  Report Type: 
  Country: None (occurrence: None)
  Receive Date: 20100223
  Receipt Date: 20100217
  Transmission Date: 20100710
  Serious: Yes (Other)
  Sender: FDA-Public Use
  Company Number: PHEH2008US06117

PATIENT
  Sex: Female
  Weight: 59 kg

DRUGS (4)
  1. ELIDEL [Suspect]
     Indication: ECZEMA
     Dosage: UNK
     Route: 061
     Dates: start: 20030301
  2. SYNTHROID [Concomitant]
     Dosage: UNK
  3. ESTROGEN NOS [Concomitant]
     Dosage: UNK
  4. HERBAL PREPARATION [Concomitant]
     Dosage: UNK

REACTIONS (4)
  - ABDOMINAL DISCOMFORT [None]
  - GALLBLADDER POLYP [None]
  - HYPOTHYROIDISM [None]
  - LYMPHOMA [None]
